FAERS Safety Report 7606053-1 (Version None)
Quarter: 2011Q3

REPORT INFORMATION
  Report Type: 
  Country: None (occurrence: None)
  Receive Date: 20110713
  Receipt Date: 20110706
  Transmission Date: 20111222
  Serious: Yes (Other)
  Sender: FDA-Public Use
  Company Number: US-ELI_LILLY_AND_COMPANY-US201107001977

PATIENT
  Sex: Female

DRUGS (3)
  1. LANTUS [Concomitant]
     Dosage: UNK
  2. HUMALOG [Suspect]
     Indication: DIABETES MELLITUS
     Dosage: UNK, PRN
     Dates: start: 20080101
  3. HUMALOG [Suspect]
     Dosage: UNK
     Dates: start: 19960101, end: 20080101

REACTIONS (3)
  - CORONARY ARTERY BYPASS [None]
  - BLINDNESS [None]
  - MACULAR DEGENERATION [None]
